FAERS Safety Report 17498320 (Version 1)
Quarter: 2020Q1

REPORT INFORMATION
  Report Type: Not Available
  Country: US (occurrence: US)
  Receive Date: 20200304
  Receipt Date: 20200304
  Transmission Date: 20200409
  Serious: Yes (Death)
  Sender: FDA-Public Use
  Company Number: US-NEUROCRINE BIOSCIENCES INC.-2020NBI00722

PATIENT
  Age: 82 Year
  Sex: Male

DRUGS (10)
  1. AGGRENOX [Concomitant]
     Active Substance: ASPIRIN\DIPYRIDAMOLE
  2. DILTIAZEM. [Concomitant]
     Active Substance: DILTIAZEM
  3. VALSARTAN. [Concomitant]
     Active Substance: VALSARTAN
  4. CARBIDOPA/LEVODOPA [Concomitant]
     Active Substance: CARBIDOPA\LEVODOPA
  5. BENZTROPINE. [Concomitant]
     Active Substance: BENZTROPINE
  6. RISPERDAL [Concomitant]
     Active Substance: RISPERIDONE
  7. ATORVASTATIN [Concomitant]
     Active Substance: ATORVASTATIN
  8. VENLAFAXINE [Concomitant]
     Active Substance: VENLAFAXINE HYDROCHLORIDE
  9. INGREZZA [Suspect]
     Active Substance: VALBENAZINE
     Indication: TARDIVE DYSKINESIA
     Route: 048
  10. TAMSULOSIN [Concomitant]
     Active Substance: TAMSULOSIN

REACTIONS (1)
  - Death [Fatal]

NARRATIVE: CASE EVENT DATE: 20200212
